FAERS Safety Report 18184549 (Version 2)
Quarter: 2020Q4

REPORT INFORMATION
  Report Type: Spontaneous
  Country: BR (occurrence: BR)
  Receive Date: 20200824
  Receipt Date: 20201022
  Transmission Date: 20210113
  Serious: Yes (Other)
  Sender: FDA-Public Use
  Company Number: BR-ROCHE-1740478

PATIENT
  Sex: Female
  Weight: 49 kg

DRUGS (2)
  1. RIVOTRIL [Suspect]
     Active Substance: CLONAZEPAM
     Indication: INSOMNIA
     Route: 048
  2. RIVOTRIL [Suspect]
     Active Substance: CLONAZEPAM
     Route: 048
     Dates: start: 1991

REACTIONS (15)
  - Syncope [Unknown]
  - Glaucoma [Recovered/Resolved]
  - Intentional product use issue [Unknown]
  - Parapsoriasis [Recovered/Resolved]
  - Alopecia [Recovered/Resolved]
  - Depression [Not Recovered/Not Resolved]
  - Tinea infection [Not Recovered/Not Resolved]
  - Bone pain [Not Recovered/Not Resolved]
  - Cataract [Recovered/Resolved]
  - Anxiety [Not Recovered/Not Resolved]
  - Drug dependence [Not Recovered/Not Resolved]
  - Off label use [Unknown]
  - Rash [Not Recovered/Not Resolved]
  - Dizziness [Recovering/Resolving]
  - Malaise [Recovering/Resolving]

NARRATIVE: CASE EVENT DATE: 2005
